FAERS Safety Report 7779316-7 (Version None)
Quarter: 2011Q3

REPORT INFORMATION
  Report Type: 
  Country: None (occurrence: None)
  Receive Date: 20110926
  Receipt Date: 20110919
  Transmission Date: 20111222
  Serious: Yes (Hospitalization, Other)
  Sender: FDA-Public Use
  Company Number: US-RB-029619-11

PATIENT
  Age: 26 Year
  Sex: Female

DRUGS (3)
  1. SUBOXONE [Suspect]
     Route: 060
     Dates: start: 20110101
  2. SUBOXONE [Suspect]
     Indication: DRUG DEPENDENCE
     Route: 060
     Dates: start: 20110501, end: 20110101
  3. SUBOXONE [Suspect]
     Route: 060
     Dates: start: 20110101, end: 20110101

REACTIONS (6)
  - OFF LABEL USE [None]
  - UNDERDOSE [None]
  - DEHYDRATION [None]
  - HYPERHIDROSIS [None]
  - KIDNEY INFECTION [None]
  - HOT FLUSH [None]
